FAERS Safety Report 5785675-7 (Version None)
Quarter: 2008Q2

REPORT INFORMATION
  Report Type: 
  Country: None (occurrence: None)
  Receive Date: 20080620
  Receipt Date: 20080620
  Transmission Date: 20081010
  Serious: Yes (Hospitalization)
  Sender: FDA-Public Use
  Company Number: None

PATIENT
  Age: 40 Year
  Sex: Male
  Weight: 102.0593 kg

DRUGS (1)
  1. AZELASTINE HCL [Suspect]
     Indication: SINUS CONGESTION
     Dosage: TWO SPRAYS EACH NOSTRIL 2 NASAL 1 DAY
     Route: 045
     Dates: start: 20080611, end: 20080611

REACTIONS (8)
  - ANXIETY [None]
  - DIZZINESS [None]
  - FATIGUE [None]
  - NAUSEA [None]
  - PALPITATIONS [None]
  - PANIC REACTION [None]
  - SLEEP DISORDER [None]
  - SYNCOPE [None]
